FAERS Safety Report 20712314 (Version 2)
Quarter: 2022Q2

REPORT INFORMATION
  Report Type: Report from Study
  Country: US (occurrence: None)
  Receive Date: 20220415
  Receipt Date: 20220419
  Transmission Date: 20220721
  Serious: Yes (Disabling)
  Sender: FDA-Public Use
  Company Number: 2022A105052

PATIENT
  Age: 33087 Day
  Sex: Female
  Weight: 78.9 kg

DRUGS (3)
  1. SYMBICORT [Suspect]
     Active Substance: BUDESONIDE\FORMOTEROL FUMARATE DIHYDRATE
     Indication: Wheezing
     Dosage: 160-4.5 MCG 4 PUFF DAILY
     Route: 055
     Dates: start: 20220109, end: 20220115
  2. SYMBICORT [Suspect]
     Active Substance: BUDESONIDE\FORMOTEROL FUMARATE DIHYDRATE
     Indication: Dyspnoea
     Dosage: 160-4.5 MCG 4 PUFF DAILY
     Route: 055
     Dates: start: 20220109, end: 20220115
  3. ALBUTEROL [Concomitant]
     Active Substance: ALBUTEROL
     Indication: Wheezing
     Dosage: 1 X DAILY FOR BREATHING
     Route: 048
     Dates: start: 20220216, end: 2022

REACTIONS (5)
  - Dyspnoea [Recovered/Resolved with Sequelae]
  - Product communication issue [Unknown]
  - Product dispensing error [Recovered/Resolved]
  - Depression [Unknown]
  - Product dose omission issue [Recovering/Resolving]

NARRATIVE: CASE EVENT DATE: 20210101
